FAERS Safety Report 7570732-5 (Version None)
Quarter: 2011Q2

REPORT INFORMATION
  Report Type: 
  Country: None (occurrence: None)
  Receive Date: 20110624
  Receipt Date: 20110622
  Transmission Date: 20111010
  Serious: No
  Sender: FDA-Public Use
  Company Number: US-TEVA-287039USA

PATIENT
  Sex: Female
  Weight: 76.726 kg

DRUGS (2)
  1. NUVARING [Concomitant]
     Indication: CONTRACEPTION
     Route: 067
     Dates: start: 20110524
  2. PLAN B ONE-STEP [Suspect]
     Indication: POST COITAL CONTRACEPTION
     Dosage: 1.5 MILLIGRAM;
     Route: 048
     Dates: start: 20110524, end: 20110524

REACTIONS (8)
  - VAGINAL DISCHARGE [None]
  - SALIVARY HYPERSECRETION [None]
  - FATIGUE [None]
  - MENSTRUATION DELAYED [None]
  - DIZZINESS [None]
  - VISION BLURRED [None]
  - NAUSEA [None]
  - PRESYNCOPE [None]
